FAERS Safety Report 8300435-0 (Version None)
Quarter: 2012Q2

REPORT INFORMATION
  Report Type: 
  Country: None (occurrence: None)
  Receive Date: 20120420
  Receipt Date: 20120410
  Transmission Date: 20120825
  Serious: Yes (Hospitalization)
  Sender: FDA-Public Use
  Company Number: FR-PFIZER INC-2012096113

PATIENT
  Age: 47 Year
  Sex: Male

DRUGS (10)
  1. ALPRAZOLAM [Suspect]
     Dosage: UNK
     Route: 048
     Dates: start: 20120225, end: 20120228
  2. TRAMADOL HCL [Concomitant]
  3. PYOSTACINE [Suspect]
     Dosage: 1 G, DAILY
     Route: 048
     Dates: start: 20120227, end: 20120229
  4. BISOPROLOL FUMARATE [Concomitant]
  5. TRAMADOL HCL [Concomitant]
  6. ACETAMINOPHEN [Concomitant]
  7. POTASSIUM CHLORIDE [Suspect]
     Dosage: UNK
     Route: 048
     Dates: start: 20120217, end: 20120227
  8. BENAZEPRIL HYDROCHLORIDE [Suspect]
     Dosage: UNK
     Route: 048
     Dates: end: 20120226
  9. ATARAX [Suspect]
     Dosage: UNK
     Route: 048
     Dates: start: 20120217, end: 20120227
  10. GALENIC /AMOXICILLIN/CLAVULANIC ACID/ [Suspect]
     Dosage: 2 G, 3X/DAY
     Route: 048
     Dates: start: 20120222, end: 20120227

REACTIONS (2)
  - RENAL FAILURE ACUTE [None]
  - URTICARIA [None]
